FAERS Safety Report 6016425-7 (Version None)
Quarter: 2008Q4

REPORT INFORMATION
  Report Type: 
  Country: None (occurrence: None)
  Receive Date: 20081222
  Receipt Date: 20081209
  Transmission Date: 20090506
  Serious: Yes (Hospitalization)
  Sender: FDA-Public Use
  Company Number: US-SANOFI-SYNTHELABO-A03200804199

PATIENT
  Sex: Male

DRUGS (3)
  1. ASPIRIN [Suspect]
     Indication: DRUG USE FOR UNKNOWN INDICATION
     Dosage: UNK
     Route: 065
     Dates: start: 20081018
  2. COUMADIN [Suspect]
     Indication: TRANSIENT ISCHAEMIC ATTACK
     Dosage: UNK
     Route: 065
     Dates: start: 20050101
  3. PLAVIX [Suspect]
     Indication: STENT PLACEMENT
     Route: 048
     Dates: start: 20081018

REACTIONS (7)
  - CHROMATURIA [None]
  - DELUSION [None]
  - DISORIENTATION [None]
  - HAEMORRHAGE [None]
  - PLEURAL EFFUSION [None]
  - PYREXIA [None]
  - URINE OUTPUT DECREASED [None]
